FAERS Safety Report 16919572 (Version 1)
Quarter: 2019Q4

REPORT INFORMATION
  Report Type: Spontaneous
  Country: GB (occurrence: GB)
  Receive Date: 20191015
  Receipt Date: 20191015
  Transmission Date: 20200122
  Serious: Yes (Other)
  Sender: FDA-Public Use
  Company Number: GB-MYLANLABS-2019M1096231

PATIENT
  Age: 56 Year
  Sex: Female
  Weight: 72 kg

DRUGS (3)
  1. ACETYLSALICYLIC ACID [Concomitant]
     Active Substance: ASPIRIN
     Dosage: UNK
  2. RAMIPRIL. [Suspect]
     Active Substance: RAMIPRIL
     Indication: HYPERTENSION
     Dosage: 5 MILLIGRAM
     Route: 048
     Dates: start: 20161206
  3. EZETIMIBE. [Concomitant]
     Active Substance: EZETIMIBE
     Dosage: UNK

REACTIONS (2)
  - Epistaxis [Not Recovered/Not Resolved]
  - Contusion [Recovered/Resolved with Sequelae]

NARRATIVE: CASE EVENT DATE: 20171214
